FAERS Safety Report 7630558-0 (Version None)
Quarter: 2011Q3

REPORT INFORMATION
  Report Type: 
  Country: None (occurrence: None)
  Receive Date: 20110722
  Receipt Date: 20080805
  Transmission Date: 20111222
  Serious: Yes (Other)
  Sender: FDA-Public Use
  Company Number: US-BAYER-200828225NA

PATIENT
  Age: 67 Year
  Sex: Male
  Weight: 63.492 kg

DRUGS (46)
  1. ISOPTIN [Concomitant]
  2. HYDRALAZINE HCL [Concomitant]
  3. POTASSIUM CHLORIDE [Concomitant]
  4. MAGNEVIST [Suspect]
     Dosage: 30 ML, ONCE
     Route: 042
     Dates: start: 20060304, end: 20060304
  5. PROHANCE [Suspect]
     Indication: NUCLEAR MAGNETIC RESONANCE IMAGING
  6. PRAZOSIN HCL [Concomitant]
  7. PROCRIT [Concomitant]
  8. EPOGEN [Concomitant]
  9. CAPTOPRIL [Concomitant]
  10. OMNISCAN [Suspect]
     Indication: NUCLEAR MAGNETIC RESONANCE IMAGING
     Dosage: 30 ML, ONCE
     Dates: start: 20031031, end: 20031031
  11. IMURAN [Concomitant]
  12. NICARDIPINE HCL [Concomitant]
  13. ITRACONAZOLE [Concomitant]
  14. ARANESP [Concomitant]
  15. HYDROCHLOROTHIAZIDE [Concomitant]
  16. LASIX [Concomitant]
  17. RENAGEL [Concomitant]
  18. DIATX [Concomitant]
  19. TOPROL-XL [Concomitant]
  20. MAGNEVIST [Suspect]
     Dosage: UNK UNK, ONCE
     Dates: start: 20060615, end: 20060615
  21. ACETYLSALICYLIC ACID SRT [Concomitant]
  22. OPTIMARK [Suspect]
     Indication: NUCLEAR MAGNETIC RESONANCE IMAGING
  23. CLONIDINE [Concomitant]
  24. LIPITOR [Concomitant]
  25. MAGNEVIST [Suspect]
     Dosage: 30 ML, ONCE
     Route: 042
     Dates: start: 20020103, end: 20020103
  26. MULTIHANCE [Suspect]
     Indication: NUCLEAR MAGNETIC RESONANCE IMAGING
  27. LOVENOX [Concomitant]
  28. DILANTIN [Concomitant]
  29. AMLODIPINE [Concomitant]
  30. IMDUR [Concomitant]
  31. FOLIC ACID [Concomitant]
  32. MAGNEVIST [Suspect]
     Indication: NUCLEAR MAGNETIC RESONANCE IMAGING
     Dosage: 20 ML, ONCE
     Dates: start: 20000111, end: 20000111
  33. MAGNEVIST [Suspect]
     Indication: ANGIOGRAM
     Dosage: 20 ML, ONCE
     Route: 042
     Dates: start: 20000114, end: 20000114
  34. MAGNEVIST [Suspect]
     Dosage: 30 ML, ONCE
     Route: 042
     Dates: start: 20000122, end: 20000122
  35. MAGNEVIST [Suspect]
     Dosage: 16 ML, ONCE
     Route: 042
     Dates: start: 20000202, end: 20000202
  36. MAGNEVIST [Suspect]
     Dosage: 20 ML, ONCE
     Route: 042
     Dates: start: 20051027, end: 20051027
  37. GADOLINIUM IN UNSPECIFIED DRUG [Suspect]
     Indication: NUCLEAR MAGNETIC RESONANCE IMAGING
     Dosage: UNK
     Dates: start: 20050819, end: 20050819
  38. AMPHOTERICIN B [Concomitant]
  39. PHOSLO [Concomitant]
  40. MAGNEVIST [Suspect]
     Dosage: 16 ML, ONCE
     Dates: start: 20000522, end: 20000522
  41. GADOLINIUM IN UNSPECIFIED DRUG [Suspect]
     Dosage: 14 ML, ONCE
     Dates: start: 20060613, end: 20060613
  42. LOPRESSOR [Concomitant]
  43. NITROGLYCERIN [Concomitant]
  44. HECTOROL [Concomitant]
  45. SODIUM BICARBONATE [Concomitant]
  46. ATENOLOL [Concomitant]

REACTIONS (18)
  - ANHEDONIA [None]
  - NEPHROGENIC SYSTEMIC FIBROSIS [None]
  - PAIN [None]
  - GENERAL PHYSICAL HEALTH DETERIORATION [None]
  - HYPERTENSION [None]
  - PEAU D'ORANGE [None]
  - MUSCULAR WEAKNESS [None]
  - INJURY [None]
  - PAIN OF SKIN [None]
  - SCAR [None]
  - ANXIETY [None]
  - BURNING SENSATION [None]
  - SKIN HYPERTROPHY [None]
  - SKIN TIGHTNESS [None]
  - JOINT RANGE OF MOTION DECREASED [None]
  - BONE PAIN [None]
  - SKIN LESION [None]
  - PRURITUS [None]
